FAERS Safety Report 14239106 (Version 1)
Quarter: 2017Q4

REPORT INFORMATION
  Report Type: Spontaneous
  Country: US (occurrence: US)
  Receive Date: 20171127
  Receipt Date: 20171127
  Transmission Date: 20180321
  Serious: No
  Sender: FDA-Public Use
  Company Number: None

PATIENT
  Age: 55 Year
  Sex: Female

DRUGS (1)
  1. ENBREL [Suspect]
     Active Substance: ETANERCEPT
     Dosage: ?          OTHER FREQUENCY:ONCE WEEKLY;OTHER ROUTE:SQ?
     Route: 058
     Dates: start: 20171111, end: 20171125

REACTIONS (6)
  - Injection site reaction [None]
  - Injection site induration [None]
  - Injection site rash [None]
  - Injection site erythema [None]
  - Therapy cessation [None]
  - Injection site bruising [None]

NARRATIVE: CASE EVENT DATE: 20171116
